FAERS Safety Report 20076667 (Version 2)
Quarter: 2021Q4

REPORT INFORMATION
  Report Type: Spontaneous
  Country: AU (occurrence: AU)
  Receive Date: 20211116
  Receipt Date: 20211223
  Transmission Date: 20220303
  Serious: Yes (Death)
  Sender: FDA-Public Use
  Company Number: AU-BAYER-2021-132993

PATIENT
  Age: 7 Year
  Sex: Male

DRUGS (1)
  1. LAROTRECTINIB [Suspect]
     Active Substance: LAROTRECTINIB
     Indication: Glioblastoma multiforme
     Dosage: UNK
     Dates: start: 202002, end: 202004

REACTIONS (2)
  - Glioblastoma multiforme [Fatal]
  - Drug ineffective [None]

NARRATIVE: CASE EVENT DATE: 20200301
